FAERS Safety Report 9088100 (Version 1)
Quarter: 2013Q1

REPORT INFORMATION
  Report Type: Spontaneous
  Country: FR (occurrence: FR)
  Receive Date: 20130218
  Receipt Date: 20130218
  Transmission Date: 20140127
  Serious: Yes (Other)
  Sender: FDA-Public Use
  Company Number: PHHY2013FR015563

PATIENT
  Age: 63 Year
  Sex: Male

DRUGS (1)
  1. AMOXICILLINE-ACIDE CLAVULANIQUE [Suspect]
     Indication: ANTIBIOTIC PROPHYLAXIS
     Route: 042
     Dates: start: 20110315

REACTIONS (4)
  - Haematuria [Recovered/Resolved]
  - Oliguria [Recovered/Resolved]
  - Anuria [Recovered/Resolved]
  - Medication crystals in urine [Recovered/Resolved]
